FAERS Safety Report 5329183-6 (Version None)
Quarter: 2007Q2

REPORT INFORMATION
  Report Type: 
  Country: None (occurrence: None)
  Receive Date: 20070518
  Receipt Date: 20070508
  Transmission Date: 20071010
  Serious: Yes (Other)
  Sender: FDA-Public Use
  Company Number: IE-PFIZER INC-2007024985

PATIENT
  Age: 59 Year
  Sex: Male
  Weight: 76.9 kg

DRUGS (4)
  1. CHAMPIX [Suspect]
     Indication: SMOKING CESSATION THERAPY
     Route: 048
  2. SERETIDE [Concomitant]
     Route: 055
  3. SPIRIVA [Concomitant]
     Route: 055
  4. COMBIVENT [Concomitant]
     Route: 055

REACTIONS (4)
  - EXCORIATION [None]
  - EYE SWELLING [None]
  - LACRIMATION INCREASED [None]
  - VIRAL INFECTION [None]
